FAERS Safety Report 6792535 (Version 4)
Quarter: 2012Q4

REPORT INFORMATION
  Report Type: 
  Country: CA (occurrence: CA)
  Receive Date: 20081021
  Receipt Date: 20121104
  Transmission Date: 20130627
  Serious: Yes (Death, Hospitalization, Other)
  Sender: FDA-Public Use
  Company Number: PHHY2008CA24606

PATIENT
  Age: 68 Year
  Sex: Male

DRUGS (3)
  1. SANDOSTATIN LAR [Suspect]
     Indication: METASTATIC NEOPLASM
     Dosage: 60 mg every 4 weeks
     Route: 030
     Dates: start: 20060502, end: 20081209
  2. SANDOSTATIN [Suspect]
     Indication: METASTATIC NEOPLASM
     Dosage: UNK UKN, BID
     Route: 058
     Dates: start: 200901
  3. IRON [Concomitant]
     Dosage: 300 mg, TID
     Route: 065

REACTIONS (5)
  - Malignant neoplasm progression [Fatal]
  - Haemorrhage [Unknown]
  - Gastrointestinal haemorrhage [Unknown]
  - Haemoglobin decreased [Unknown]
  - Chest pain [Unknown]
